FAERS Safety Report 6093058-8 (Version None)
Quarter: 2009Q1

REPORT INFORMATION
  Report Type: 
  Country: None (occurrence: None)
  Receive Date: 20090224
  Receipt Date: 20090209
  Transmission Date: 20090719
  Serious: Yes (Other)
  Sender: FDA-Public Use
  Company Number: 2009S1002387

PATIENT
  Age: 65 Year
  Sex: Male

DRUGS (8)
  1. CIPROFLOXACIN [Suspect]
     Indication: LOWER RESPIRATORY TRACT INFECTION
     Dosage: 250 MG
  2. APIRIN (CON.) [Concomitant]
  3. CETIRIZINE (CON.) [Concomitant]
  4. EZETIMIBE (CON.) [Concomitant]
  5. IRBESARTAN (CON.) [Concomitant]
  6. OXPRENOLOL (CON.) [Concomitant]
  7. SIMVASTATIN (CON.) [Concomitant]
  8. TIOTROPIUM BROMDE (CON.) [Concomitant]

REACTIONS (1)
  - PSEUDOPORPHYRIA [None]
